FAERS Safety Report 4976525-7 (Version None)
Quarter: 2006Q2

REPORT INFORMATION
  Report Type: 
  Country: None (occurrence: None)
  Receive Date: 20060418
  Receipt Date: 20060418
  Transmission Date: 20061013
  Serious: Yes (Death)
  Sender: FDA-Public Use
  Company Number: None

PATIENT
  Age: 27 Year
  Sex: Male
  Weight: 73.9363 kg

DRUGS (1)
  1. ZOLOFT [Suspect]
     Indication: DEPRESSION
     Dosage: 50 MG 1 DAILY PO
     Route: 048
     Dates: start: 20060109, end: 20060318

REACTIONS (9)
  - ABNORMAL BEHAVIOUR [None]
  - AGGRESSION [None]
  - AGITATION [None]
  - ANOREXIA [None]
  - COMPLETED SUICIDE [None]
  - CRYING [None]
  - DECREASED INTEREST [None]
  - INJURY ASPHYXIATION [None]
  - PANIC REACTION [None]
